FAERS Safety Report 9393825 (Version 3)
Quarter: 2013Q3

REPORT INFORMATION
  Report Type: Spontaneous
  Country: CN (occurrence: None)
  Receive Date: 20130705
  Receipt Date: 20130723
  Transmission Date: 20140515
  Serious: Yes (Hospitalization)
  Sender: FDA-Public Use
  Company Number: SYM-2013-05313

PATIENT
  Age: 53 Year
  Sex: Male

DRUGS (15)
  1. 5 FU [Suspect]
     Indication: COLORECTAL CANCER METASTATIC
     Route: 040
     Dates: start: 20130515, end: 20130515
  2. BLINDED THERAPY (SOLUTION FOR INFUSION) [Suspect]
     Indication: COLORECTAL CANCER METASTATIC
     Route: 042
     Dates: start: 20130515, end: 20130515
  3. IRINOTECAN [Suspect]
     Indication: COLORECTAL CANCER METASTATIC
     Route: 042
     Dates: start: 20130515, end: 20130515
  4. LEUCOVORIN (FOLINIC ACID) (SOLUTION FOR INFUSION) (FOLINIC ACID) [Suspect]
     Indication: COLORECTAL CANCER METASTATIC
     Route: 042
     Dates: start: 20130515, end: 20130515
  5. MORPHINE SULFATE (MORPHINE SULFATE) (MORPHINE SULFATE) [Concomitant]
  6. PROMETHAZINE HYDROCHLORIDE (PROMETHAZINE HYDROCHLORIDE) (PROMETHAZINE HYDROCHLORIDE) [Concomitant]
  7. DEXAMETHASONE (DEXAMETHASONE) (DEXAMETHASONE) [Concomitant]
  8. TROPISETRON HYDROCHLORIDE (TROPISETRON HYDROCHLORIDE) (TROPISETRON HYDROCHLORIDE) [Concomitant]
  9. ASPIRIN (ACETYLSALICYLIC ACID) (ACETYLSALICYLIC ACID) [Concomitant]
  10. ONDANSETRON (ONDANSETRON) (ONDANSETRON) [Concomitant]
  11. ETORICOXIB (ETORICOXIB) (ETORICOXIB) [Concomitant]
  12. PROMETHAZINE HYDROCHLORIDE (PROMETHAZINE HYDROCHLORIDE) (PROMETHAZINE HYDROCHLORIDE) [Concomitant]
  13. DEXAMETHASONE (DEXAMETHASONE) (DEXAMETHASONE) [Concomitant]
  14. TROPISETRON HYDROCHLORIDE (TROPISETRON HYDROCHLORIDE) (TROPISETRON HYDROCHLORIDE) [Concomitant]
  15. OXYCONTIN (OXYCODONE HYDROCHLORIDE) (OXYCODONE HYDROCHLORIDE) [Concomitant]

REACTIONS (9)
  - Fatigue [None]
  - Liver injury [None]
  - Palmar-plantar erythrodysaesthesia syndrome [None]
  - Skin exfoliation [None]
  - Pruritus [None]
  - Skin injury [None]
  - Skin ulcer [None]
  - Platelet count decreased [None]
  - Neutrophil count decreased [None]
